FAERS Safety Report 5953929-7 (Version None)
Quarter: 2008Q4

REPORT INFORMATION
  Report Type: 
  Country: None (occurrence: None)
  Receive Date: 20081114
  Receipt Date: 20081104
  Transmission Date: 20090506
  Serious: Yes (Other)
  Sender: FDA-Public Use
  Company Number: ES-PFIZER INC-2008087150

PATIENT
  Age: 50 Year
  Sex: Male

DRUGS (1)
  1. LYRICA [Suspect]
     Indication: NEURALGIA
     Route: 048
     Dates: start: 20060101, end: 20080401

REACTIONS (2)
  - RETINAL TOXICITY [None]
  - VISUAL FIELD DEFECT [None]
